FAERS Safety Report 11640549 (Version 1)
Quarter: 2015Q4

REPORT INFORMATION
  Report Type: Spontaneous
  Country: US (occurrence: None)
  Receive Date: 20151016
  Receipt Date: 20151016
  Transmission Date: 20160304
  Serious: Yes (Other)
  Sender: FDA-Public Use
  Company Number: None

PATIENT
  Age: 55 Year
  Sex: Female
  Weight: 58.97 kg

DRUGS (6)
  1. C [Concomitant]
  2. HYDROCODONE [Concomitant]
     Active Substance: HYDROCODONE
  3. IRON [Concomitant]
     Active Substance: IRON
  4. CLONAZEPAM 1 MG [Suspect]
     Active Substance: CLONAZEPAM
     Indication: SLEEP DISORDER
     Route: 048
  5. TART CHERRY [Concomitant]
  6. DAILY VITAMIN [Concomitant]
     Active Substance: VITAMINS

REACTIONS (5)
  - Insomnia [None]
  - Headache [None]
  - Vision blurred [None]
  - Drug withdrawal syndrome [None]
  - Cardiac disorder [None]
